FAERS Safety Report 7247286-6 (Version None)
Quarter: 2011Q1

REPORT INFORMATION
  Report Type: 
  Country: None (occurrence: None)
  Receive Date: 20110127
  Receipt Date: 20110120
  Transmission Date: 20110831
  Serious: Yes (Death, Hospitalization)
  Sender: FDA-Public Use
  Company Number: A0908304A

PATIENT
  Age: 62 Year
  Sex: Male

DRUGS (11)
  1. BENICAR [Concomitant]
     Dosage: 20MG IN THE MORNING
  2. SIMVASTATIN [Concomitant]
  3. SYNTHROID [Concomitant]
     Dosage: 125MCG PER DAY
  4. PROMACTA [Suspect]
     Dosage: 25MG PER DAY
     Route: 048
     Dates: start: 20100201, end: 20101101
  5. SPIRIVA [Concomitant]
  6. INSULIN [Concomitant]
     Dosage: 40U TWICE PER DAY
  7. TYLENOL-500 [Concomitant]
  8. FUROSEMIDE [Concomitant]
     Dosage: 40MG IN THE MORNING
  9. XOPENEX [Concomitant]
  10. PROPRANOLOL [Concomitant]
     Dosage: 20MG TWICE PER DAY
  11. AVELOX [Concomitant]
     Dosage: 400MG PER DAY

REACTIONS (21)
  - CARDIAC FAILURE CONGESTIVE [None]
  - RESPIRATORY DISTRESS [None]
  - HEPATIC CIRRHOSIS [None]
  - ABDOMINAL DISTENSION [None]
  - ABDOMINAL DISCOMFORT [None]
  - DYSPNOEA [None]
  - PULMONARY HYPERTENSION [None]
  - DEATH [None]
  - APHASIA [None]
  - HEPATORENAL SYNDROME [None]
  - GASTROINTESTINAL HAEMORRHAGE [None]
  - HYDRONEPHROSIS [None]
  - GENERALISED OEDEMA [None]
  - NAUSEA [None]
  - HEPATIC ENCEPHALOPATHY [None]
  - ISCHAEMIC CARDIOMYOPATHY [None]
  - VARICES OESOPHAGEAL [None]
  - MULTI-ORGAN FAILURE [None]
  - DYSPHAGIA [None]
  - CHROMATURIA [None]
  - HYPOTENSION [None]
